FAERS Safety Report 15930579 (Version 1)
Quarter: 2019Q1

REPORT INFORMATION
  Report Type: Spontaneous
  Country: US (occurrence: US)
  Receive Date: 20190115
  Receipt Date: 20190115
  Transmission Date: 20190417
  Serious: No
  Sender: FDA-Public Use
  Company Number: None

PATIENT
  Age: 70 Year
  Sex: Male

DRUGS (2)
  1. PREDNISONE. [Concomitant]
     Active Substance: PREDNISONE
  2. ZYTIGA [Suspect]
     Active Substance: ABIRATERONE ACETATE
     Indication: PROSTATE CANCER
     Route: 048
     Dates: start: 20181005

REACTIONS (6)
  - Liver function test abnormal [None]
  - Blood glucose abnormal [None]
  - Blood cholesterol abnormal [None]
  - Blood electrolytes abnormal [None]
  - White blood cell disorder [None]
  - Blood pressure increased [None]

NARRATIVE: CASE EVENT DATE: 20190108
